FAERS Safety Report 9507366 (Version 1)
Quarter: 2013Q1

REPORT INFORMATION
  Report Type: Spontaneous
  Country: US (occurrence: None)
  Receive Date: 20130305
  Receipt Date: 20130305
  Transmission Date: 20140127
  Serious: Yes (Other)
  Sender: FDA-Public Use
  Company Number: 163-21880-11051983

PATIENT
  Age: 75 Year
  Sex: Male

DRUGS (14)
  1. REVLIMID [Suspect]
     Indication: MYELODYSPLASTIC SYNDROME
     Dosage: 28 DAYS
     Route: 048
     Dates: start: 20101024, end: 20110208
  2. OXYCODONE [Concomitant]
  3. CARISOPROLOL (CARPISOPROLOL) (TABLETS) [Concomitant]
  4. PROCHLOPERAZINE (PORCHLORPERAZINE) (TABLETS) [Concomitant]
  5. HCTZ (HYDROCHLOROTHIAZIDE) [Concomitant]
  6. LISINOPRIL (LISINPROPRIL) (TABLETS) [Concomitant]
  7. TAMULOSIN (TAMULOSIN) (CAPSULES) [Concomitant]
  8. WHOLE BLOOD [Concomitant]
  9. OXYCODONE/APAP(OXYCODONE/APAP) (UNKNOWN) [Concomitant]
  10. ACID REDUCER (RANITIDINE HYDROCHLORIDE) (TABLETS) [Concomitant]
  11. CENTRUM (CENTRUM) (TABLETS) [Concomitant]
  12. TYLENOL (PRACETAMOL) (TABLETS) [Concomitant]
  13. METAMUCIL (ISPAGHULA) (49.57 PERCENT, POWDER) [Concomitant]
  14. RED BLOOD CEKK TRANSFUSION (BLOOD CELLS, PACKED, HUMAN) (UNKNOWN) [Concomitant]

REACTIONS (2)
  - Haemoglobin decreased [None]
  - Drug ineffective [None]
